FAERS Safety Report 16264167 (Version 1)
Quarter: 2019Q2

REPORT INFORMATION
  Report Type: Spontaneous
  Country: US (occurrence: US)
  Receive Date: 20190501
  Receipt Date: 20190501
  Transmission Date: 20190711
  Serious: Yes (Hospitalization)
  Sender: FDA-Public Use
  Company Number: None

PATIENT
  Sex: Female

DRUGS (12)
  1. TOBRAMYCIN. [Suspect]
     Active Substance: TOBRAMYCIN
     Indication: PRODUCT USED FOR UNKNOWN INDICATION
     Dosage: ?          OTHER ROUTE:NEBULIZER?
     Dates: start: 20181106
  2. CYPROHEPTAD [Concomitant]
  3. BACLOFEN. [Concomitant]
     Active Substance: BACLOFEN
  4. BUDESONIDE. [Concomitant]
     Active Substance: BUDESONIDE
  5. NYSTATIN. [Concomitant]
     Active Substance: NYSTATIN
  6. TIZANDINE [Concomitant]
     Active Substance: TIZANIDINE
  7. CLOBAZAM. [Concomitant]
     Active Substance: CLOBAZAM
  8. IPRATROPIUM [Concomitant]
     Active Substance: IPRATROPIUM
  9. LEVETIRACETA [Concomitant]
  10. VALPROIC [Concomitant]
     Active Substance: VALPROIC ACID
  11. DANTROLENE. [Concomitant]
     Active Substance: DANTROLENE SODIUM
  12. FLUTICASONE. [Concomitant]
     Active Substance: FLUTICASONE

REACTIONS (1)
  - Infection [None]
